FAERS Safety Report 6530289-4 (Version None)
Quarter: 2009Q4

REPORT INFORMATION
  Report Type: 
  Country: None (occurrence: None)
  Receive Date: 20091231
  Receipt Date: 20091221
  Transmission Date: 20100525
  Serious: Yes (Hospitalization)
  Sender: FDA-Public Use
  Company Number: 2009016132

PATIENT
  Age: 56 Year
  Sex: Male
  Weight: 104.3273 kg

DRUGS (22)
  1. NUVIGIL [Suspect]
     Dosage: 250 MG (250 MG, 1 IN 1 D), ORAL
     Route: 048
     Dates: start: 20090923, end: 20090927
  2. PROVIGIL [Suspect]
     Dosage: ORAL
     Route: 048
  3. INDERAL [Concomitant]
  4. LEXAPRO [Concomitant]
  5. ALLEGRA [Concomitant]
  6. BENICAR [Concomitant]
  7. FLONASE [Concomitant]
  8. LUNESTA (EZOPICLONE) [Concomitant]
  9. MIRAPEX [Concomitant]
  10. PROTONIX [Concomitant]
  11. PRAVACHOL [Concomitant]
  12. XANAX [Concomitant]
  13. ASPIRIN [Concomitant]
  14. CLONAZEPAM [Concomitant]
  15. FIBERCON (POLYCARBOPHIL) [Concomitant]
  16. LOVAZA [Concomitant]
  17. OPTIVAR [Concomitant]
  18. PULMICORT [Concomitant]
  19. LEVITRA [Concomitant]
  20. PHENERGAN (PROMETHAZINE) [Concomitant]
  21. VICODIN [Concomitant]
  22. KETOROLAC (KETOROLAC) [Concomitant]

REACTIONS (1)
  - TRANSIENT ISCHAEMIC ATTACK [None]
